FAERS Safety Report 10151420 (Version 1)
Quarter: 2014Q2

REPORT INFORMATION
  Report Type: Spontaneous
  Country: US (occurrence: US)
  Receive Date: 20140502
  Receipt Date: 20140502
  Transmission Date: 20141212
  Serious: No
  Sender: FDA-Public Use
  Company Number: US-B.I. PHARMACEUTICALS,INC./RIDGEFIELD-2014-BI-18626BP

PATIENT
  Age: 86 Year
  Sex: Male
  Weight: 67 kg

DRUGS (10)
  1. SPIRIVA [Suspect]
     Indication: CHRONIC OBSTRUCTIVE PULMONARY DISEASE
     Dosage: 18 MCG
     Route: 055
     Dates: start: 2004
  2. AMILORIDE HCTZ [Concomitant]
     Indication: HYPERTENSION
     Dosage: DOSE PER APPLICATION : 5MG/ 50 MG; DAILY DOSE: 5MG/50 MG
     Route: 048
  3. SINGULIAR [Concomitant]
     Indication: CHRONIC OBSTRUCTIVE PULMONARY DISEASE
     Dosage: 10 MG
     Route: 048
  4. DOXAZOSIN [Concomitant]
     Indication: HYPERTENSION
     Dosage: 1 MG
     Route: 048
  5. CLOBETASOL OINTMENT [Concomitant]
     Indication: SKIN DISORDER
     Route: 061
  6. ECOTRIN [Concomitant]
     Dosage: 325 MG
     Route: 048
  7. FLUOCINONIDE OINTMENT [Concomitant]
     Indication: SKIN DISORDER
     Dosage: DOSE PER APPLICATION: 0.05 %;
     Route: 061
  8. HYDRORTISONE CREAM [Concomitant]
     Indication: SKIN DISORDER
     Dosage: DOSE PER APPLICATION: 2.5 %;
     Route: 061
  9. PRAVASTATIN [Concomitant]
     Indication: BLOOD CHOLESTEROL INCREASED
     Dosage: 20 MG
     Route: 048
  10. PREDNISONE [Concomitant]
     Indication: SKIN DISORDER
     Route: 048

REACTIONS (8)
  - Pain [Not Recovered/Not Resolved]
  - Pulmonary congestion [Not Recovered/Not Resolved]
  - Productive cough [Not Recovered/Not Resolved]
  - Nasopharyngitis [Not Recovered/Not Resolved]
  - Cough [Not Recovered/Not Resolved]
  - Product quality issue [Recovered/Resolved]
  - Product quality issue [Recovered/Resolved]
  - Product quality issue [Recovered/Resolved]
